FAERS Safety Report 8909916 (Version 2)
Quarter: 2013Q1

REPORT INFORMATION
  Report Type: Spontaneous
  Country: US (occurrence: US)
  Receive Date: 20121115
  Receipt Date: 20130129
  Transmission Date: 20140127
  Serious: Yes (Other)
  Sender: FDA-Public Use
  Company Number: US-PFIZER INC-2012281207

PATIENT
  Age: 57 Year
  Sex: Female

DRUGS (7)
  1. XALATAN [Suspect]
     Dosage: UNK
  2. NAPROXEN [Concomitant]
     Indication: BACK PAIN
     Dosage: 500 MG
  3. PAXIL [Concomitant]
     Indication: DEPRESSION
     Dosage: 4 MG, 1X/DAY
  4. SIMVASTATIN [Concomitant]
     Indication: BLOOD CHOLESTEROL
     Dosage: 20 MG, UNK
  5. ALPRAZOLAM [Concomitant]
     Indication: ANXIETY
     Dosage: 0.5 MG, UNK
  6. HYDROCODONE [Concomitant]
     Indication: BACK PAIN
     Dosage: 7.5-750 ONCE DAILY
  7. HYDROCODONE [Concomitant]
     Indication: ARTHRALGIA

REACTIONS (2)
  - Hypertension [Unknown]
  - Mental disorder [Unknown]
